FAERS Safety Report 4290677-6 (Version None)
Quarter: 2004Q1

REPORT INFORMATION
  Report Type: 
  Country: None (occurrence: None)
  Receive Date: 20040211
  Receipt Date: 20031003
  Transmission Date: 20041129
  Serious: No
  Sender: FDA-Public Use
  Company Number: US-GLAXOSMITHKLINE-A0428733A

PATIENT
  Age: 54 Year
  Sex: Female

DRUGS (2)
  1. PAXIL [Suspect]
     Indication: MAJOR DEPRESSION
     Dosage: 10MG PER DAY
     Route: 048
  2. NAPROXEN [Concomitant]

REACTIONS (2)
  - ALOPECIA [None]
  - TONGUE BITING [None]
